FAERS Safety Report 7604352-0 (Version None)
Quarter: 2011Q3

REPORT INFORMATION
  Report Type: 
  Country: None (occurrence: None)
  Receive Date: 20110712
  Receipt Date: 20110705
  Transmission Date: 20111222
  Serious: Yes (Hospitalization, Other)
  Sender: FDA-Public Use
  Company Number: PHHO2011CN03228

PATIENT
  Sex: Male
  Weight: 75 kg

DRUGS (13)
  1. METOPROLOL TARTRATE [Concomitant]
  2. ENALAPRIL MALEATE [Suspect]
     Indication: CARDIAC FAILURE
     Dosage: 5 MG, BID
     Route: 048
     Dates: start: 20101224, end: 20110111
  3. ASPIRIN [Concomitant]
  4. BLINDED NO TREATMENT RECEIVED [Suspect]
     Indication: CARDIAC FAILURE
     Dosage: CODE NOT BROKEN
     Route: 048
     Dates: start: 20110215, end: 20110304
  5. BLINDED ALISKIREN [Suspect]
     Indication: CARDIAC FAILURE
     Dosage: CODE NOT BROKEN
     Route: 048
     Dates: start: 20110215, end: 20110304
  6. ENALAPRIL MALEATE [Suspect]
     Indication: CARDIAC FAILURE
     Dosage: CODE NOT BROKEN
     Route: 048
     Dates: start: 20110215, end: 20110304
  7. ALISKIREN [Suspect]
     Indication: CARDIAC FAILURE
     Dosage: 10 MG, BID
     Route: 048
     Dates: start: 20110111, end: 20110215
  8. DICLOFENAC SODIUM [Suspect]
     Dosage: 25 MG, QD
     Route: 048
     Dates: start: 20110128, end: 20110207
  9. FUROSEMIDE [Suspect]
     Indication: CARDIAC FAILURE
     Dosage: 20 MG, QD
     Route: 048
     Dates: start: 20071031, end: 20110219
  10. ENALAPRIL MALEATE [Suspect]
     Dosage: 10 MG, BID
     Route: 048
     Dates: start: 20110111, end: 20110215
  11. FOSINOPRIL SODIUM [Concomitant]
  12. DIGOXIN [Concomitant]
  13. INSULIN [Suspect]

REACTIONS (6)
  - RENAL IMPAIRMENT [None]
  - LUNG NEOPLASM MALIGNANT [None]
  - GOUT [None]
  - CARDIAC FAILURE [None]
  - DIABETIC NEPHROPATHY [None]
  - LIVER DISORDER [None]
